FAERS Safety Report 20426098 (Version 1)
Quarter: 2022Q1

REPORT INFORMATION
  Report Type: Report from Study
  Country: US (occurrence: US)
  Receive Date: 20220204
  Receipt Date: 20220204
  Transmission Date: 20220423
  Serious: No
  Sender: FDA-Public Use
  Company Number: US-EXELIXIS-CABO-21041010

PATIENT
  Sex: Male

DRUGS (3)
  1. CABOMETYX [Suspect]
     Active Substance: CABOZANTINIB S-MALATE
     Indication: Renal cancer
     Dosage: 40 MG, QD
     Route: 048
     Dates: start: 20210517, end: 20210621
  2. CABOMETYX [Suspect]
     Active Substance: CABOZANTINIB S-MALATE
     Dosage: 20 MG, QD
     Route: 048
  3. CABOMETYX [Suspect]
     Active Substance: CABOZANTINIB S-MALATE
     Dosage: 20 MG, QD
     Route: 048
     Dates: end: 202110

REACTIONS (11)
  - Fall [Unknown]
  - Influenza like illness [Unknown]
  - Vitamin D decreased [Unknown]
  - Hypoproteinaemia [Unknown]
  - Pneumonia [Recovering/Resolving]
  - Blood magnesium decreased [Unknown]
  - Fatigue [Unknown]
  - Diarrhoea [Unknown]
  - Vomiting [Unknown]
  - Protein urine present [Unknown]
  - Haemorrhage [Unknown]
